FAERS Safety Report 6981766-3 (Version None)
Quarter: 2010Q3

REPORT INFORMATION
  Report Type: 
  Country: None (occurrence: None)
  Receive Date: 20100914
  Receipt Date: 20091022
  Transmission Date: 20110219
  Serious: No
  Sender: FDA-Public Use
  Company Number: US-PFIZER INC-2009261630

PATIENT
  Sex: Female
  Weight: 68.038 kg

DRUGS (4)
  1. LYRICA [Suspect]
     Indication: PAIN
     Dosage: 50 MG, 2X/DAY
     Dates: start: 20090814
  2. LYRICA [Suspect]
     Indication: BACK INJURY
  3. SYNTHROID [Concomitant]
     Dosage: UNK
  4. IBUPROFEN [Concomitant]
     Dosage: UNK

REACTIONS (3)
  - CONTUSION [None]
  - DIZZINESS [None]
  - PAIN OF SKIN [None]
